FAERS Safety Report 24823686 (Version 3)
Quarter: 2025Q2

REPORT INFORMATION
  Report Type: Spontaneous
  Country: US (occurrence: US)
  Receive Date: 20250109
  Receipt Date: 20250518
  Transmission Date: 20250717
  Serious: No
  Sender: ELI LILLY AND COMPANY
  Company Number: US-ELI_LILLY_AND_COMPANY-US202501004768

PATIENT
  Age: 57 Year
  Sex: Female

DRUGS (1)
  1. TALTZ [Suspect]
     Active Substance: IXEKIZUMAB
     Indication: Ankylosing spondylitis
     Route: 058

REACTIONS (5)
  - Tongue ulceration [Unknown]
  - Stomatitis [Unknown]
  - Angular cheilitis [Unknown]
  - Lichen planus [Unknown]
  - Coccidioidomycosis [Unknown]

NARRATIVE: CASE EVENT DATE: 20190101
